FAERS Safety Report 4314920-X (Version None)
Quarter: 2004Q1

REPORT INFORMATION
  Report Type: 
  Country: None (occurrence: None)
  Receive Date: 20040310
  Receipt Date: 20040302
  Transmission Date: 20041129
  Serious: Yes (Hospitalization)
  Sender: FDA-Public Use
  Company Number: WAES 0403USA00421

PATIENT
  Age: 78 Year
  Sex: Male

DRUGS (11)
  1. BIOFERMIN [Concomitant]
     Route: 048
     Dates: start: 20030712
  2. CALTAN [Concomitant]
     Route: 048
     Dates: start: 20010322
  3. DIMETHICONE [Concomitant]
     Route: 048
     Dates: start: 20030410
  4. DROXIDOPA [Concomitant]
     Route: 048
     Dates: start: 20031030
  5. ECABET SODIUM [Concomitant]
     Route: 048
     Dates: start: 20030712
  6. DEPAS [Suspect]
     Route: 048
     Dates: start: 20030715, end: 20040226
  7. PEPCID RPD [Suspect]
     Route: 048
     Dates: start: 20030712, end: 20040226
  8. PEPCID RPD [Suspect]
     Route: 048
     Dates: start: 20030527, end: 20030711
  9. KETOTIFEN FUMARATE [Concomitant]
     Route: 048
     Dates: start: 20010322
  10. MEXILETINE HYDROCHLORIDE [Concomitant]
     Route: 048
     Dates: start: 20040203
  11. SENNOSIDES [Concomitant]
     Route: 048
     Dates: start: 20010322

REACTIONS (1)
  - RHABDOMYOLYSIS [None]
